FAERS Safety Report 5499633-3 (Version None)
Quarter: 2007Q4

REPORT INFORMATION
  Report Type: 
  Country: None (occurrence: None)
  Receive Date: 20071026
  Receipt Date: 20071023
  Transmission Date: 20080405
  Serious: Yes (Death, Hospitalization)
  Sender: FDA-Public Use
  Company Number: GB-SANOFI-SYNTHELABO-F01200701358

PATIENT
  Age: 59 Year
  Sex: Male

DRUGS (5)
  1. CETUXIMAB [Suspect]
     Dosage: 400 MG/M2 LOADING DOSE FOLLOWED BY A WEEKLY INFUSION OF 250 MG/M2
     Route: 041
     Dates: start: 20070309, end: 20070309
  2. METFORMIN [Concomitant]
     Indication: TYPE 2 DIABETES MELLITUS
  3. FLUOROURACIL [Suspect]
     Dosage: 800 MG IV BOLUS FOLLOWED BY A 46 HOUR INFUSION OF 4750 MG
     Route: 041
     Dates: start: 20070309, end: 20070310
  4. OXALIPLATIN [Suspect]
     Indication: COLORECTAL CANCER METASTATIC
     Route: 041
     Dates: start: 20070309, end: 20070309
  5. STEROID, NOS [Suspect]

REACTIONS (1)
  - DIABETIC HYPEROSMOLAR COMA [None]
